FAERS Safety Report 15933280 (Version 1)
Quarter: 2019Q1

REPORT INFORMATION
  Report Type: Spontaneous
  Country: GR (occurrence: GR)
  Receive Date: 20190207
  Receipt Date: 20190207
  Transmission Date: 20190417
  Serious: Yes (Hospitalization, Other)
  Sender: FDA-Public Use
  Company Number: GR-IMPAX LABORATORIES, LLC-2019-IPXL-00413

PATIENT
  Age: 42 Year
  Sex: Male

DRUGS (4)
  1. CABERGOLINE. [Suspect]
     Active Substance: CABERGOLINE
     Dosage: 1 MILLIGRAM/WEEK, DOSE WAS REDUCED
     Route: 065
  2. CABERGOLINE. [Suspect]
     Active Substance: CABERGOLINE
     Dosage: WEEKLY INCREASED BY 1 MG TO A TOTAL DOSE OF 3.5 MG/
     Route: 065
  3. CABERGOLINE. [Suspect]
     Active Substance: CABERGOLINE
     Indication: PROLACTIN-PRODUCING PITUITARY TUMOUR
     Dosage: 1.5 MILLIGRAM/WEEK
     Route: 065
  4. CABERGOLINE. [Suspect]
     Active Substance: CABERGOLINE
     Dosage: 2 MILLIGRAM, WEEKLY
     Route: 065

REACTIONS (2)
  - Brain herniation [Recovered/Resolved]
  - Chiasma syndrome [Recovered/Resolved]
